FAERS Safety Report 9471298 (Version 2)
Quarter: 2013Q3

REPORT INFORMATION
  Report Type: Spontaneous
  Country: DK (occurrence: FR)
  Receive Date: 20130822
  Receipt Date: 20130822
  Transmission Date: 20140515
  Serious: Yes (Hospitalization)
  Sender: FDA-Public Use
  Company Number: FR-FRI-1000015887

PATIENT
  Age: 73 Year
  Sex: Female

DRUGS (9)
  1. ESCITALOPRAM [Suspect]
     Dosage: 1 DF
     Route: 048
     Dates: start: 20100417, end: 20100807
  2. PREVISCAN [Suspect]
     Route: 048
     Dates: start: 20100519, end: 20100807
  3. COTAREG [Suspect]
     Route: 048
     Dates: start: 20100428, end: 20100807
  4. IMOVANE [Suspect]
     Dosage: 7.5 MG
     Route: 048
     Dates: start: 20100503, end: 20100809
  5. TAHOR [Concomitant]
     Route: 048
     Dates: start: 201004
  6. AMLOR [Concomitant]
     Route: 048
     Dates: start: 201004
  7. TEMERIT [Concomitant]
     Route: 048
     Dates: start: 20100630
  8. DIANTALVIC [Concomitant]
     Route: 048
     Dates: start: 201006
  9. DITROPAN [Concomitant]
     Dates: start: 20100708

REACTIONS (1)
  - Drug reaction with eosinophilia and systemic symptoms [Recovered/Resolved]
